FAERS Safety Report 8392377 (Version 2)
Quarter: 2013Q4

REPORT INFORMATION
  Report Type: Spontaneous
  Country: DE (occurrence: DE)
  Receive Date: 20120206
  Receipt Date: 20131219
  Transmission Date: 20140711
  Serious: Yes (Other)
  Sender: FDA-Public Use
  Company Number: CHPA2012DE002346

PATIENT
  Sex: Female

DRUGS (1)
  1. NICOTINELL TTS 30 [Suspect]
     Indication: SMOKING CESSATION THERAPY
     Dosage: 21 MG, QD
     Route: 062
     Dates: start: 20120127, end: 20120127

REACTIONS (6)
  - Pulse abnormal [Recovering/Resolving]
  - Palpitations [Recovering/Resolving]
  - Blood pressure increased [Recovering/Resolving]
  - Dizziness [Recovering/Resolving]
  - Nausea [Recovering/Resolving]
  - Abdominal pain upper [Recovering/Resolving]
